FAERS Safety Report 14091315 (Version 2)
Quarter: 2019Q2

REPORT INFORMATION
  Report Type: Spontaneous
  Country: US (occurrence: US)
  Receive Date: 20171016
  Receipt Date: 20190607
  Transmission Date: 20190711
  Serious: Yes (Other)
  Sender: FDA-Public Use
  Company Number: US-APOTEX-2017AP014762

PATIENT
  Age: 6 Year
  Sex: Male

DRUGS (2)
  1. SIROLIMUS. [Suspect]
     Active Substance: SIROLIMUS
     Indication: ANGIOSARCOMA
     Dosage: 3 MG/M2/DAY, LEVEL 8-12 NG/ML
     Route: 065
  2. ZOLEDRONIC ACID INJECTION [Suspect]
     Active Substance: ZOLEDRONIC ACID
     Indication: ANGIOSARCOMA
     Dosage: 2.3 MG/M2, 4 MG MAX
     Route: 065

REACTIONS (6)
  - Mucosal inflammation [Recovered/Resolved]
  - Osteomyelitis [Recovered/Resolved]
  - Osteitis [Recovered/Resolved]
  - Pyrexia [Recovered/Resolved]
  - Product use in unapproved indication [Unknown]
  - Bone pain [Recovered/Resolved]
